FAERS Safety Report 6589655-3 (Version None)
Quarter: 2010Q1

REPORT INFORMATION
  Report Type: 
  Country: None (occurrence: None)
  Receive Date: 20100218
  Receipt Date: 20100208
  Transmission Date: 20100710
  Serious: Yes (Other)
  Sender: FDA-Public Use
  Company Number: CH-ABBOTT-09P-151-0615350-00

PATIENT
  Sex: Male

DRUGS (1)
  1. HUMIRA [Suspect]
     Indication: CROHN'S DISEASE
     Dates: start: 20080701, end: 20080901

REACTIONS (4)
  - ERYTHEMA [None]
  - PAIN [None]
  - PANNICULITIS [None]
  - SYSTEMIC LUPUS ERYTHEMATOSUS [None]
